FAERS Safety Report 7988631-3 (Version None)
Quarter: 2011Q4

REPORT INFORMATION
  Report Type: 
  Country: None (occurrence: None)
  Receive Date: 20111218
  Receipt Date: 20050120
  Transmission Date: 20120403
  Serious: Yes (Death)
  Sender: FDA-Public Use
  Company Number: PHHY2005MX007073

PATIENT
  Age: 85 Year
  Sex: Male

DRUGS (1)
  1. FORADIL [Suspect]
     Dosage: UNK

REACTIONS (1)
  - DEATH [None]
